FAERS Safety Report 14101777 (Version 2)
Quarter: 2017Q4

REPORT INFORMATION
  Report Type: Report from Study
  Country: BR (occurrence: BR)
  Receive Date: 20171018
  Receipt Date: 20171101
  Transmission Date: 20180321
  Serious: Yes (Hospitalization, Other)
  Sender: FDA-Public Use
  Company Number: PHHY2017BR152123

PATIENT
  Age: 69 Year
  Sex: Female
  Weight: 71 kg

DRUGS (8)
  1. DIOVAN AMLO FIX [Suspect]
     Active Substance: AMLODIPINE\VALSARTAN
     Indication: HYPERTENSION
     Dosage: 1 DF (AMLODIPINE 10 MG, VALSARTAN 320 MG), QD (IN THE MORNING)
     Route: 048
  2. XIGDUO XR [Concomitant]
     Active Substance: DAPAGLIFLOZIN PROPANEDIOL\METFORMIN HYDROCHLORIDE
     Indication: DIABETES MELLITUS
     Dosage: 1 DF, QD AT BREAKFAST (3 MONTHS AGO) (10/1000 MG)
     Route: 048
  3. INDAPAM [Concomitant]
     Indication: HYPERTENSION
     Dosage: 1.5 MG, QD (3 MONTHS AGO)
     Route: 048
  4. ATENOLOL. [Concomitant]
     Active Substance: ATENOLOL
     Indication: HYPERTENSION
     Dosage: 2 DF, QD (3 MONTHS AGO)
     Route: 048
  5. JANUMET [Concomitant]
     Active Substance: METFORMIN HYDROCHLORIDE\SITAGLIPTIN PHOSPHATE
     Indication: DIABETES MELLITUS
     Route: 065
  6. GLIMEPIRIDE. [Concomitant]
     Active Substance: GLIMEPIRIDE
     Indication: DIABETES MELLITUS
     Dosage: 1 MG, QD (3 MONTHS AGO)
     Route: 048
  7. ASPIRINA PREVENT [Concomitant]
     Active Substance: ASPIRIN
     Indication: PROPHYLAXIS
     Dosage: 1 DF, QD (3 MONTHS AGO)
     Route: 048
  8. AMAREL [Concomitant]
     Active Substance: GLIMEPIRIDE
     Indication: DIABETES MELLITUS
     Dosage: 10 MG, QD (AFTER LUNCH)
     Route: 048

REACTIONS (6)
  - Anger [Unknown]
  - Procedural pain [Recovering/Resolving]
  - Blood cholesterol increased [Recovering/Resolving]
  - Bone pain [Recovering/Resolving]
  - Myocardial infarction [Recovering/Resolving]
  - Venous occlusion [Recovering/Resolving]

NARRATIVE: CASE EVENT DATE: 201707
